FAERS Safety Report 18813825 (Version 5)
Quarter: 2021Q3

REPORT INFORMATION
  Report Type: Report from Study
  Country: AT (occurrence: AT)
  Receive Date: 20210201
  Receipt Date: 20210712
  Transmission Date: 20211014
  Serious: Yes (Hospitalization)
  Sender: FDA-Public Use
  Company Number: AT-ROCHE-2757230

PATIENT
  Age: 70 Year
  Sex: Female
  Weight: 72 kg

DRUGS (15)
  1. G?CSF [Concomitant]
     Active Substance: GRANULOCYTE COLONY-STIMULATING FACTOR NOS
     Route: 058
     Dates: start: 20201226, end: 20201230
  2. UROMITEXAN [Concomitant]
     Active Substance: MESNA
     Dosage: 400 OTHER
     Route: 048
     Dates: start: 20201102, end: 20210303
  3. POLATUZUMAB VEDOTIN. [Suspect]
     Active Substance: POLATUZUMAB VEDOTIN
     Indication: B-CELL LYMPHOMA
     Dosage: MOST RECENT DOSE ON 13/JAN/2021 AT THE DOSE OF 142 MG
     Route: 042
     Dates: start: 20201102
  4. DAFLON [Concomitant]
     Route: 048
  5. ALLOPURINOL. [Concomitant]
     Active Substance: ALLOPURINOL
     Route: 048
     Dates: start: 202010
  6. CYCLOPHOSPHAMIDE. [Suspect]
     Active Substance: CYCLOPHOSPHAMIDE
     Indication: B-CELL LYMPHOMA
     Dosage: MOST RECENT DOSE PRIOR TO SAE ON 13/JAN/2021 AT THE DOSE OF 1398 MG
     Route: 042
     Dates: start: 20201102
  7. UNASYN [Concomitant]
     Active Substance: AMPICILLIN SODIUM\SULBACTAM SODIUM
     Route: 048
     Dates: start: 20210124, end: 20210125
  8. MIRTABENE [Concomitant]
     Active Substance: MIRTAZAPINE
     Route: 048
     Dates: start: 202102, end: 202103
  9. CEFEPIM [Concomitant]
     Active Substance: CEFEPIME HYDROCHLORIDE
     Route: 042
     Dates: start: 20210126, end: 20210205
  10. MOSUNETUZUMAB. [Suspect]
     Active Substance: MOSUNETUZUMAB
     Indication: B-CELL LYMPHOMA
     Dosage: MOST RECENT DOSE PRIOR TO SAE ON 13/JAN/2021 AT THE DOSE OF 30 MG
     Route: 042
     Dates: start: 20201102
  11. G?CSF [Concomitant]
     Active Substance: GRANULOCYTE COLONY-STIMULATING FACTOR NOS
     Route: 058
     Dates: start: 20210117, end: 20210121
  12. ZOFRAN [Concomitant]
     Active Substance: ONDANSETRON HYDROCHLORIDE
     Route: 048
     Dates: start: 202011, end: 202103
  13. PREDNISONE. [Suspect]
     Active Substance: PREDNISONE
     Indication: B-CELL LYMPHOMA
     Dosage: MOST RECENT DOSE ON 17/JAN/2021 AT THE DOSE OF 100 MG
     Route: 048
     Dates: start: 20201102
  14. DOXORUBICIN [Suspect]
     Active Substance: DOXORUBICIN
     Indication: B-CELL LYMPHOMA
     Dosage: MOST RECENT DOSE ON 13/JAN/2021 AT THE DOSE OF 97 MG
     Route: 042
     Dates: start: 20201102
  15. ENAC HEXAL [Concomitant]
     Route: 048

REACTIONS (1)
  - Klebsiella infection [Recovered/Resolved]

NARRATIVE: CASE EVENT DATE: 20210124
